FAERS Safety Report 8696377 (Version 3)
Quarter: 2012Q4

REPORT INFORMATION
  Report Type: 
  Country: US (occurrence: US)
  Receive Date: 20120801
  Receipt Date: 20120910
  Transmission Date: 20130627
  Serious: Yes (Disabling, Other)
  Sender: FDA-Public Use
  Company Number: US-PFIZER INC-2012184757

PATIENT
  Age: 48 Year
  Sex: Female
  Weight: 61.22 kg

DRUGS (11)
  1. GEODON [Suspect]
     Indication: DEPRESSION
     Dosage: 80 mg, 1x/day
     Route: 048
     Dates: start: 2008
  2. GEODON [Suspect]
     Dosage: 80 mg, 1x/day
     Route: 048
     Dates: end: 201204
  3. GEODON [Suspect]
     Dosage: 60 mg, 1x/day
     Route: 048
     Dates: start: 201204
  4. ZYPREXA ZYDIS [Concomitant]
     Indication: SCHIZOPHRENIA
     Dosage: UNK
  5. KLONOPIN [Concomitant]
     Indication: ANXIETY
     Dosage: UNK
  6. OXYCODONE [Concomitant]
     Dosage: UNK
  7. FLEXERIL [Concomitant]
     Dosage: UNK
  8. BUTAL [Concomitant]
     Dosage: UNK
  9. PHENERGAN [Concomitant]
     Dosage: UNK
  10. PAXIL [Concomitant]
     Dosage: UNK
  11. ZYPREXA [Concomitant]
     Dosage: UNK

REACTIONS (5)
  - Depression [Unknown]
  - Back disorder [Unknown]
  - Mobility decreased [Unknown]
  - Impaired work ability [Unknown]
  - Malaise [Unknown]
